FAERS Safety Report 24719489 (Version 4)
Quarter: 2025Q1

REPORT INFORMATION
  Report Type: Spontaneous
  Country: KR (occurrence: KR)
  Receive Date: 20241211
  Receipt Date: 20250109
  Transmission Date: 20250409
  Serious: Yes (Hospitalization, Other)
  Sender: UNITED THERAPEUTICS
  Company Number: KR-UNITED THERAPEUTICS-UNT-2024-039214

PATIENT
  Age: 33 Year
  Sex: Female
  Weight: 31 kg

DRUGS (4)
  1. REMODULIN [Suspect]
     Active Substance: TREPROSTINIL
     Indication: Pulmonary arterial hypertension
  2. REMODULIN [Suspect]
     Active Substance: TREPROSTINIL
  3. OXYGEN [Concomitant]
     Active Substance: OXYGEN
     Indication: Dyspnoea
  4. Cardiotonic [Concomitant]
     Indication: Cardiac failure

REACTIONS (9)
  - Cardiac failure [Not Recovered/Not Resolved]
  - Pleural effusion [Recovering/Resolving]
  - Infusion site warmth [Recovering/Resolving]
  - Infusion site pain [Recovering/Resolving]
  - Infusion site swelling [Recovering/Resolving]
  - Infusion site nodule [Not Recovered/Not Resolved]
  - Subcutaneous drug absorption impaired [Recovered/Resolved]
  - Therapy partial responder [Recovered/Resolved]
  - Infusion site infection [Recovered/Resolved]

NARRATIVE: CASE EVENT DATE: 20241128
